FAERS Safety Report 5164162-3 (Version None)
Quarter: 2006Q4

REPORT INFORMATION
  Report Type: 
  Country: None (occurrence: None)
  Receive Date: 20060918
  Receipt Date: 20051201
  Transmission Date: 20070319
  Serious: Yes (Hospitalization)
  Sender: FDA-Public Use
  Company Number: US-JNJFOC-20051201314

PATIENT
  Age: 82 Year
  Sex: Female
  Weight: 52.1637 kg

DRUGS (4)
  1. TOPAMAX [Suspect]
     Indication: MIGRAINE PROPHYLAXIS
     Dosage: 25 MG, 1 IN 1 DAY, ORAL; 25 MG, 2 IN 1 DAY, ORAL
     Route: 048
     Dates: start: 20051106, end: 20051107
  2. TOPAMAX [Suspect]
     Indication: MIGRAINE PROPHYLAXIS
     Dosage: 25 MG, 1 IN 1 DAY, ORAL; 25 MG, 2 IN 1 DAY, ORAL
     Route: 048
     Dates: start: 20051108, end: 20051119
  3. NEURONTIN [Concomitant]
  4. ZOFRAN [Concomitant]

REACTIONS (2)
  - ABDOMINAL PAIN LOWER [None]
  - DIARRHOEA [None]
